FAERS Safety Report 9817436 (Version 1)
Quarter: 2014Q1

REPORT INFORMATION
  Report Type: Spontaneous
  Country: US (occurrence: US)
  Receive Date: 20140115
  Receipt Date: 20140115
  Transmission Date: 20141002
  Serious: No
  Sender: FDA-Public Use
  Company Number: US-BIOGENIDEC-2013BI073783

PATIENT
  Age: 56 Year
  Sex: Male
  Weight: 66 kg

DRUGS (18)
  1. AVONEX [Suspect]
     Indication: MULTIPLE SCLEROSIS
     Route: 030
     Dates: start: 20120606
  2. AVONEX [Suspect]
     Indication: MULTIPLE SCLEROSIS
     Route: 030
     Dates: start: 201301
  3. AVONEX [Suspect]
     Indication: MULTIPLE SCLEROSIS
     Route: 030
     Dates: start: 20130201
  4. FLUOXETINE [Concomitant]
     Route: 048
  5. METOCLOPRAMIDE [Concomitant]
     Route: 048
  6. CYANOCOBALAMIN [Concomitant]
     Route: 048
  7. DYAZIDE [Concomitant]
     Route: 048
  8. VITAMIN D [Concomitant]
     Route: 048
  9. ACETAMINOPHEN [Concomitant]
     Route: 048
  10. AMANTADINE [Concomitant]
  11. BACLOFEN [Concomitant]
  12. AMPYRA [Concomitant]
  13. PROZAC [Concomitant]
  14. REGLAN [Concomitant]
  15. OMEPRAZOLE [Concomitant]
  16. DETROL [Concomitant]
  17. TOLTERODINE [Concomitant]
     Route: 048
  18. SUCRALFATE [Concomitant]
     Route: 048

REACTIONS (8)
  - Somnolence [Unknown]
  - Fatigue [Unknown]
  - Multiple sclerosis relapse [Unknown]
  - Back pain [Not Recovered/Not Resolved]
  - Influenza like illness [Unknown]
  - Muscle tightness [Unknown]
  - Muscle spasms [Unknown]
  - Musculoskeletal stiffness [Not Recovered/Not Resolved]
